FAERS Safety Report 4617240-9 (Version None)
Quarter: 2005Q1

REPORT INFORMATION
  Report Type: 
  Country: None (occurrence: None)
  Receive Date: 20050323
  Receipt Date: 20050321
  Transmission Date: 20050727
  Serious: Yes (Other)
  Sender: FDA-Public Use
  Company Number: PHBS2005CL04102

PATIENT
  Age: 87 Year
  Sex: Female

DRUGS (5)
  1. EXELON [Suspect]
     Dosage: 3 MG/D
     Route: 048
  2. EXELON [Suspect]
     Dosage: 6 MG/D
     Route: 048
  3. ISOSORBIDE [Concomitant]
     Route: 065
  4. VALACYCLOVIR HCL [Concomitant]
     Route: 065
  5. PROPRANOLOL [Concomitant]
     Route: 065

REACTIONS (3)
  - HERPES ZOSTER [None]
  - HYPERTENSIVE CRISIS [None]
  - VOMITING [None]
